FAERS Safety Report 7541328-6 (Version None)
Quarter: 2011Q2

REPORT INFORMATION
  Report Type: 
  Country: None (occurrence: None)
  Receive Date: 20110612
  Receipt Date: 20110531
  Transmission Date: 20111010
  Serious: Yes (Hospitalization)
  Sender: FDA-Public Use
  Company Number: GR-ELI_LILLY_AND_COMPANY-GR201106000656

PATIENT
  Age: 36 Year
  Sex: Male

DRUGS (3)
  1. ARIPIPRAZOLE [Concomitant]
  2. OLANZAPINE [Suspect]
     Dosage: 30 MG, QD
     Dates: start: 20100101
  3. DULOXETINE HYDROCHLORIDE [Suspect]
     Indication: DEPRESSIVE SYMPTOM
     Dosage: 90 MG, QD
     Dates: start: 20100101

REACTIONS (2)
  - PULMONARY EMBOLISM [None]
  - OVERDOSE [None]
